FAERS Safety Report 13815078 (Version 1)
Quarter: 2017Q3

REPORT INFORMATION
  Report Type: Spontaneous
  Country: CZ (occurrence: CZ)
  Receive Date: 20170731
  Receipt Date: 20170731
  Transmission Date: 20171127
  Serious: Yes (Hospitalization, Other)
  Sender: FDA-Public Use
  Company Number: CZ-PFIZER INC-2017323113

PATIENT
  Age: 18 Year
  Sex: Male
  Weight: 60 kg

DRUGS (4)
  1. LEXAURIN [Suspect]
     Active Substance: BROMAZEPAM
     Dosage: UNK
     Dates: start: 20160516, end: 20160516
  2. XANAX [Suspect]
     Active Substance: ALPRAZOLAM
     Dosage: 1 TABLET, SINGLE DOSE
     Dates: start: 20160516, end: 20160516
  3. STOPEX [Suspect]
     Active Substance: DEXTROMETHORPHAN HYDROBROMIDE
     Dosage: 10 TABLETS, SINGLE DOSE
     Dates: start: 20160516, end: 20160516
  4. DITHIADEN [Suspect]
     Active Substance: BISULEPIN
     Indication: INTENTIONAL PRODUCT MISUSE
     Dosage: 6 TABLETS, SINGLE DOSE
     Dates: start: 20160516, end: 20160516

REACTIONS (5)
  - Sedation [Recovered/Resolved]
  - Coordination abnormal [Unknown]
  - Intentional product misuse [Unknown]
  - Altered state of consciousness [Recovered/Resolved]
  - Mydriasis [Unknown]

NARRATIVE: CASE EVENT DATE: 20160516
